FAERS Safety Report 10789567 (Version 1)
Quarter: 2015Q1

REPORT INFORMATION
  Report Type: Spontaneous
  Country: US (occurrence: None)
  Receive Date: 20150211
  Receipt Date: 20150211
  Transmission Date: 20150721
  Serious: Yes (Hospitalization)
  Sender: FDA-Public Use
  Company Number: None

PATIENT
  Age: 58 Year
  Sex: Female
  Weight: 81 kg

DRUGS (15)
  1. OXYCONTIN [Concomitant]
     Active Substance: OXYCODONE HYDROCHLORIDE
  2. OXALIPLATIN. [Suspect]
     Active Substance: OXALIPLATIN
  3. LEUCOVORIN [Suspect]
     Active Substance: LEUCOVORIN
  4. LISINOPRIL. [Concomitant]
     Active Substance: LISINOPRIL
  5. MIRALAX [Concomitant]
     Active Substance: POLYETHYLENE GLYCOL 3350
  6. METHYL CAMPHER [Concomitant]
  7. OXYCODONE [Concomitant]
     Active Substance: OXYCODONE
  8. LACTULOSE. [Concomitant]
     Active Substance: LACTULOSE
  9. 5FU [Suspect]
     Active Substance: FLUOROURACIL
  10. INSULIN ASPART SLIDING SCALE [Concomitant]
  11. PROTONIX [Concomitant]
     Active Substance: PANTOPRAZOLE SODIUM
  12. ABRAXANE [Suspect]
     Active Substance: PACLITAXEL
     Indication: PANCREATIC CARCINOMA
  13. LANTUS [Concomitant]
     Active Substance: INSULIN GLARGINE
  14. COMPAZINE [Concomitant]
     Active Substance: PROCHLORPERAZINE MALEATE
  15. SENNA PLUS [Concomitant]
     Active Substance: DOCUSATE SODIUM\SENNOSIDES\SENNOSIDES A AND B

REACTIONS (7)
  - Asthenia [None]
  - Hyperglycaemia [None]
  - Haemoglobin decreased [None]
  - Acute kidney injury [None]
  - Lethargy [None]
  - Platelet count decreased [None]
  - Diabetic ketoacidosis [None]

NARRATIVE: CASE EVENT DATE: 20150128
